FAERS Safety Report 6265764-3 (Version None)
Quarter: 2009Q3

REPORT INFORMATION
  Report Type: 
  Country: None (occurrence: None)
  Receive Date: 20090709
  Receipt Date: 20090709
  Transmission Date: 20100115
  Serious: No
  Sender: FDA-Public Use
  Company Number: None

PATIENT
  Age: 39 Year
  Sex: Female
  Weight: 127.0072 kg

DRUGS (1)
  1. ZICAM NASAL SPRAY/GEL [Suspect]
     Indication: NASAL CONGESTION
     Dosage: FOLLOWED LABEL INSTRUCTIONS EVERY 6 HOURS NASAL
     Route: 045
     Dates: start: 19981001, end: 19990129

REACTIONS (2)
  - ANOSMIA [None]
  - DYSGEUSIA [None]
